FAERS Safety Report 6723867-0 (Version None)
Quarter: 2010Q2

REPORT INFORMATION
  Report Type: 
  Country: None (occurrence: None)
  Receive Date: 20100511
  Receipt Date: 20100427
  Transmission Date: 20101027
  Serious: Yes (Other)
  Sender: FDA-Public Use
  Company Number: 2010-00007

PATIENT
  Age: 77 Year
  Sex: Male
  Weight: 68.0396 kg

DRUGS (1)
  1. AVEENO BATH TREATMENT [Suspect]
     Indication: SKIN IRRITATION
     Dosage: 1 PACKET IN BATH, TOPICAL
     Route: 061
     Dates: start: 20100427

REACTIONS (3)
  - EYE DISORDER [None]
  - HEADACHE [None]
  - INCORRECT ROUTE OF DRUG ADMINISTRATION [None]
